FAERS Safety Report 8473191-3 (Version None)
Quarter: 2012Q2

REPORT INFORMATION
  Report Type: 
  Country: None (occurrence: None)
  Receive Date: 20120627
  Receipt Date: 20120620
  Transmission Date: 20120825
  Serious: Yes (Hospitalization, Other)
  Sender: FDA-Public Use
  Company Number: FR-PFIZER INC-2003009220

PATIENT
  Age: 64 Year
  Sex: Male
  Weight: 75 kg

DRUGS (5)
  1. AMIODARONE HCL [Suspect]
     Indication: SUPRAVENTRICULAR EXTRASYSTOLES
  2. CIRKAN [Suspect]
     Indication: ANAL FISSURE
     Dosage: 1 DF, 1X/DAY
     Route: 048
     Dates: start: 20020621, end: 20020702
  3. PROCTOLOG [Suspect]
     Indication: ANAL FISSURE
     Dosage: UNK
     Route: 061
     Dates: start: 20020621, end: 20020702
  4. AMIODARONE HCL [Suspect]
     Indication: ATRIAL FIBRILLATION
     Dosage: 400 MG, 1X/DAY
     Route: 048
     Dates: start: 20020621, end: 20020707
  5. AMIODARONE HCL [Suspect]
     Indication: ATRIAL FLUTTER

REACTIONS (3)
  - ERYTHEMA MULTIFORME [None]
  - CROHN'S DISEASE [None]
  - EOSINOPHILIA [None]
